FAERS Safety Report 24960485 (Version 1)
Quarter: 2025Q1

REPORT INFORMATION
  Report Type: Spontaneous
  Country: BE (occurrence: BE)
  Receive Date: 20250212
  Receipt Date: 20250212
  Transmission Date: 20250408
  Serious: Yes (Hospitalization)
  Sender: PFIZER
  Company Number: BE-ROCHE-10000181330

PATIENT
  Age: 70 Year
  Sex: Male
  Weight: 56.6 kg

DRUGS (17)
  1. RUXIENCE [Suspect]
     Active Substance: RITUXIMAB-PVVR
     Indication: Diffuse large B-cell lymphoma
     Dosage: START DATE OF MOST RECENT DOSE OF STUDY DRUG PRIOR TO AE/SAE: 31-OCT-2024
     Route: 042
     Dates: start: 20240605
  2. DOXORUBICIN HYDROCHLORIDE [Suspect]
     Active Substance: DOXORUBICIN HYDROCHLORIDE
     Indication: Diffuse large B-cell lymphoma
     Dosage: START DATE OF MOST RECENT DOSE OF STUDY DRUG PRIOR TO AE/SAE: 23-SEP-2024
     Route: 042
     Dates: start: 20240605
  3. SOLU-MEDROL [Suspect]
     Active Substance: METHYLPREDNISOLONE SODIUM SUCCINATE
     Indication: Diffuse large B-cell lymphoma
     Dosage: START DATE OF MOST RECENT DOSE OF STUDY DRUG PRIOR TO AE/SAE: 31-OCT-2024
     Route: 042
     Dates: start: 20240605
  4. CYCLOPHOSPHAMIDE [Suspect]
     Active Substance: CYCLOPHOSPHAMIDE
     Indication: Diffuse large B-cell lymphoma
     Dosage: START DATE OF MOST RECENT DOSE OF STUDY DRUG PRIOR TO AE 23-SEP-2024
     Route: 042
     Dates: start: 20240605
  5. POLATUZUMAB VEDOTIN [Concomitant]
     Active Substance: POLATUZUMAB VEDOTIN
     Indication: Diffuse large B-cell lymphoma
     Dosage: START DATE OF MOST RECENT DOSE OF STUDY DRUG PRIOR TO AE/SAE: 23-SEP-2024
     Route: 042
     Dates: start: 20240606
  6. ASPIRIN [Concomitant]
     Active Substance: ASPIRIN
     Indication: Myocardial ischaemia
     Dosage: 80 MG, 1X/DAY
     Route: 048
     Dates: start: 2019
  7. FENOFIBRATE [Concomitant]
     Active Substance: FENOFIBRATE
     Indication: Myocardial ischaemia
     Dosage: 267 MG, 1X/DAY
     Route: 048
     Dates: start: 2019
  8. NEBIVOLOL [Concomitant]
     Active Substance: NEBIVOLOL
     Indication: Myocardial ischaemia
     Dosage: 5 MG, 1X/DAY
     Route: 048
     Dates: start: 2019
  9. METFORMIN HYDROCHLORIDE [Concomitant]
     Active Substance: METFORMIN HYDROCHLORIDE
     Indication: Diabetes mellitus
     Dosage: 500 MG, 1X/DAY
     Route: 048
     Dates: start: 2002
  10. CHOLECALCIFEROL [Concomitant]
     Active Substance: CHOLECALCIFEROL
     Indication: Prophylaxis
     Dosage: 25000 IU, WEEKLY
     Route: 048
  11. CHOLESFYTOL [Concomitant]
     Indication: Nutritional supplementation
     Route: 048
  12. LAMIVUDINE [Concomitant]
     Active Substance: LAMIVUDINE
     Indication: Prophylaxis
     Dosage: 100 MG, 1X/DAY
     Route: 058
     Dates: start: 20240625
  13. ACYCLOVIR [Concomitant]
     Active Substance: ACYCLOVIR
     Indication: Infection prophylaxis
     Dosage: 400 MG, 2X/DAY
     Route: 048
     Dates: start: 2024
  14. BACTRIM [Concomitant]
     Active Substance: SULFAMETHOXAZOLE\TRIMETHOPRIM
     Indication: Infection prophylaxis
     Dosage: 960 MG, 3X/DAY
     Route: 048
     Dates: start: 2024
  15. CEFEPIME HYDROCHLORIDE [Concomitant]
     Active Substance: CEFEPIME HYDROCHLORIDE
     Indication: Febrile neutropenia
     Dosage: 2 G, 3X/DAY
     Route: 042
     Dates: start: 20250112
  16. DOXYCYCLINE [Concomitant]
     Active Substance: DOXYCYCLINE
     Indication: Febrile neutropenia
     Dosage: 200 MG, 1X/DAY
     Route: 048
     Dates: start: 20250113
  17. COVID-19 VACCINE [Concomitant]
     Dates: start: 20240501, end: 20240501

REACTIONS (1)
  - Febrile neutropenia [Recovering/Resolving]

NARRATIVE: CASE EVENT DATE: 20250112
